FAERS Safety Report 5930073-6 (Version None)
Quarter: 2008Q4

REPORT INFORMATION
  Report Type: 
  Country: None (occurrence: None)
  Receive Date: 20081024
  Receipt Date: 20081017
  Transmission Date: 20090506
  Serious: No
  Sender: FDA-Public Use
  Company Number: US-B.I. PHARMACEUTICALS,INC./RIDGEFIELD-2008-BP-15287BP

PATIENT
  Age: 80 Year
  Sex: Female
  Weight: 86 kg

DRUGS (10)
  1. AGGRENOX [Suspect]
     Indication: TRANSIENT ISCHAEMIC ATTACK
     Dates: end: 20081001
  2. ASPIRIN [Concomitant]
     Dosage: 325MG
     Dates: start: 20071026
  3. COREG [Concomitant]
     Dosage: 25MG
     Dates: start: 20080728
  4. FOSAMAX [Concomitant]
     Dosage: 10MG
     Dates: start: 20080728
  5. SYNTHROID [Concomitant]
     Dosage: .088MG
     Dates: start: 20080728
  6. KLONOPIN [Concomitant]
     Dates: start: 20080908
  7. DARVOCET-N 100 [Concomitant]
     Dates: start: 20080929
  8. DITROPAN XL [Concomitant]
     Dosage: 10MG
     Dates: start: 20080929
  9. GLUCOPHAGE XR [Concomitant]
     Dates: start: 20080929
  10. METOPROLOL TARTRATE [Concomitant]
     Dosage: 100MG
     Dates: start: 20080929

REACTIONS (1)
  - HEADACHE [None]
